FAERS Safety Report 25772736 (Version 1)
Quarter: 2025Q3

REPORT INFORMATION
  Report Type: Spontaneous
  Country: CN (occurrence: CN)
  Receive Date: 20250908
  Receipt Date: 20250908
  Transmission Date: 20251020
  Serious: Yes (Hospitalization, Other)
  Sender: BAYER HEALTHCARE LLC
  Company Number: CN-BAYER-2025A116178

PATIENT
  Age: 49 Year
  Sex: Female
  Weight: 55 kg

DRUGS (2)
  1. NAPROXEN SODIUM [Suspect]
     Active Substance: NAPROXEN SODIUM
     Indication: Osteoarthritis
     Dosage: 1 DF, BID
     Route: 048
     Dates: start: 20250811, end: 20250825
  2. HERBALS [Suspect]
     Active Substance: HERBALS
     Indication: Osteoarthritis
     Dosage: 2 DF, BID
     Route: 048
     Dates: start: 20250811, end: 20250825

REACTIONS (7)
  - Drug eruption [Recovering/Resolving]
  - Respiratory rate increased [None]
  - Pyrexia [Recovered/Resolved]
  - Skin temperature increased [None]
  - Swelling of eyelid [None]
  - Product use in unapproved indication [None]
  - Product prescribing issue [None]

NARRATIVE: CASE EVENT DATE: 20250811
